FAERS Safety Report 25601659 (Version 1)
Quarter: 2025Q3

REPORT INFORMATION
  Report Type: Spontaneous
  Country: GB (occurrence: GB)
  Receive Date: 20250724
  Receipt Date: 20250724
  Transmission Date: 20251021
  Serious: Yes (Hospitalization, Disabling, Other)
  Sender: CIPLA
  Company Number: GB-MHRA-EMIS-1069-3f549948-dc86-426b-b09b-addcb7b5aa46

PATIENT

DRUGS (3)
  1. RIVAROXABAN [Suspect]
     Active Substance: RIVAROXABAN
     Indication: Deep vein thrombosis
     Dosage: 1 DOSAGE FORM, QD (ONE TO BE TAKEN EACH DAY)
     Route: 065
     Dates: start: 20250207, end: 20250709
  2. NITROFURANTOIN [Concomitant]
     Active Substance: NITROFURANTOIN
     Indication: Product used for unknown indication
     Route: 065
     Dates: start: 20250611
  3. HYDROMOL [SODIUM PIDOLATE] [Concomitant]
     Indication: Adverse drug reaction
     Dosage: 500 GRAM, BID (APPLY TWICE DAILY TO SKIN AS EMOLLIENT)
     Route: 061
     Dates: start: 20250611

REACTIONS (4)
  - Facial paralysis [Recovering/Resolving]
  - Aphasia [Recovering/Resolving]
  - Confusional state [Recovering/Resolving]
  - Subarachnoid haemorrhage [Recovering/Resolving]

NARRATIVE: CASE EVENT DATE: 20250619
